FAERS Safety Report 5190361-0 (Version None)
Quarter: 2006Q4

REPORT INFORMATION
  Report Type: 
  Country: None (occurrence: None)
  Receive Date: 20061222
  Receipt Date: 20060821
  Transmission Date: 20070319
  Serious: Yes (Disabling, Other)
  Sender: FDA-Public Use
  Company Number: PHEH2006US10792

PATIENT
  Age: 51 Year
  Sex: Female
  Weight: 63.945 kg

DRUGS (5)
  1. ATENOLOL [Concomitant]
     Dosage: 25 MG, BID
     Route: 048
  2. MONOPRIL [Concomitant]
     Dosage: 40 MG, QD
     Route: 048
  3. LASIX [Concomitant]
     Dosage: 20 MG, QD
     Route: 048
  4. OCUVITE [Concomitant]
  5. FEMARA [Suspect]
     Indication: BREAST CANCER STAGE II
     Dosage: 2.5 MG, QD
     Route: 048
     Dates: start: 20060314, end: 20060926

REACTIONS (7)
  - ARTHRALGIA [None]
  - DIZZINESS [None]
  - EXOSTOSIS [None]
  - HEADACHE [None]
  - MUSCULOSKELETAL PAIN [None]
  - OSTEOARTHRITIS [None]
  - ROTATOR CUFF SYNDROME [None]
